FAERS Safety Report 25008245 (Version 2)
Quarter: 2025Q1

REPORT INFORMATION
  Report Type: Spontaneous
  Country: US (occurrence: US)
  Receive Date: 20250225
  Receipt Date: 20250305
  Transmission Date: 20250409
  Serious: Yes (Life-Threatening, Hospitalization, Other)
  Sender: AUROBINDO
  Company Number: US-MLMSERVICE-20250203-PI390592-00218-1

PATIENT
  Age: 60 Year
  Sex: Male

DRUGS (8)
  1. METHOTREXATE [Suspect]
     Active Substance: METHOTREXATE
     Indication: Acute myeloid leukaemia
     Dosage: 12 MILLIGRAM, ONCE A DAY (ON HOSPITAL DAYS 7 AND 10)
     Route: 037
  2. METHOTREXATE [Suspect]
     Active Substance: METHOTREXATE
     Indication: Acute disseminated encephalomyelitis
  3. AZACITIDINE [Suspect]
     Active Substance: AZACITIDINE
     Indication: Acute myeloid leukaemia
     Route: 065
  4. VENETOCLAX [Suspect]
     Active Substance: VENETOCLAX
     Indication: Acute myeloid leukaemia
     Route: 065
  5. HYDROCORTISONE [Concomitant]
     Active Substance: HYDROCORTISONE
     Indication: Acute myeloid leukaemia
     Dosage: 50 MILLIGRAM, ONCE A DAY (ON HOSPITAL DAYS 7 AND 10.)
     Route: 037
  6. HYDROCORTISONE [Concomitant]
     Active Substance: HYDROCORTISONE
     Indication: Acute disseminated encephalomyelitis
  7. CYTARABINE [Concomitant]
     Active Substance: CYTARABINE
     Indication: Acute myeloid leukaemia
     Dosage: 70 MILLIGRAM, ONCE A DAY (ON HOSPITAL DAYS 7 AND 10)
     Route: 037
  8. CYTARABINE [Concomitant]
     Active Substance: CYTARABINE
     Indication: Acute disseminated encephalomyelitis

REACTIONS (4)
  - Epidermal necrosis [Unknown]
  - Pancytopenia [Unknown]
  - Renal impairment [Unknown]
  - Drug ineffective [Unknown]
